FAERS Safety Report 13181847 (Version 1)
Quarter: 2017Q1

REPORT INFORMATION
  Report Type: Spontaneous
  Country: US (occurrence: US)
  Receive Date: 20170202
  Receipt Date: 20170202
  Transmission Date: 20170428
  Serious: No
  Sender: FDA-Public Use
  Company Number: US-IMPAX LABORATORIES, INC-2016-IPXL-01502

PATIENT
  Age: 73 Year
  Sex: Female

DRUGS (14)
  1. RYTARY [Interacting]
     Active Substance: CARBIDOPA\LEVODOPA
     Dosage: 3 CAPSULES OF 195 MG AND  ONE CAPSULE OF 95 MG (FOUR CAPSULES)
     Route: 048
  2. SYNTHROID [Interacting]
     Active Substance: LEVOTHYROXINE SODIUM
     Indication: THYROID THERAPY
     Dosage: 0.88 MG, ONCE A DAY IN THE MORNING
     Route: 065
  3. VITAMIN D3 [Concomitant]
     Active Substance: CHOLECALCIFEROL
     Indication: PRODUCT USED FOR UNKNOWN INDICATION
     Dosage: 2000 LU UNITS
     Route: 065
  4. GABAPENTIN. [Interacting]
     Active Substance: GABAPENTIN
     Indication: NEUROPATHY PERIPHERAL
     Dosage: 100 MG, THREE TIMES DAILY
     Route: 065
  5. RYTARY [Suspect]
     Active Substance: CARBIDOPA\LEVODOPA
     Indication: PARKINSON^S DISEASE
     Dosage: THREE CAPSULES 195 MG AT FIVE TO SIX HOURS INTERVALS FOUR TIMES A DAY
     Route: 048
     Dates: start: 201606
  6. SENNA [Concomitant]
     Active Substance: SENNA LEAF\SENNOSIDES\SENNOSIDES A AND B
     Indication: CONSTIPATION
     Dosage: 8.6 MG, TWO TABLETS AT NIGHT
     Route: 065
  7. VITAMIN B12 [Concomitant]
     Active Substance: CYANOCOBALAMIN
     Indication: PRODUCT USED FOR UNKNOWN INDICATION
     Dosage: 1000 UNITS
     Route: 065
  8. ALEVE [Concomitant]
     Active Substance: NAPROXEN SODIUM
     Indication: HEADACHE
     Dosage: 220 MG, ONCE A DAY
     Route: 065
  9. CENTRUM SILVER [Concomitant]
     Active Substance: MINERALS\VITAMINS
     Indication: SUPPLEMENTATION THERAPY
     Dosage: ONE TABLET WITH FOOD IN AFTERNOON
     Route: 065
  10. RYTARY [Interacting]
     Active Substance: CARBIDOPA\LEVODOPA
     Dosage: 48/75MG/195 1 CAPSULE FOUR TIMES A DAY EVERY 5-6 HRS
     Route: 048
  11. GABAPENTIN. [Interacting]
     Active Substance: GABAPENTIN
     Dosage: UNK, DOSE REDUCED
     Route: 065
  12. ALEVE [Concomitant]
     Active Substance: NAPROXEN SODIUM
     Indication: MYALGIA
  13. LEXAPRO [Interacting]
     Active Substance: ESCITALOPRAM OXALATE
     Indication: OBSESSIVE-COMPULSIVE PERSONALITY DISORDER
     Dosage: TWO TABLETS -ONE TABLET OF 5 MG AND THE OTHER ONE OF 10 MG ONCE IN THE MORNING
     Route: 065
  14. ALEVE [Concomitant]
     Active Substance: NAPROXEN SODIUM
     Indication: PAIN

REACTIONS (6)
  - Abdominal pain [Unknown]
  - Feeling jittery [Not Recovered/Not Resolved]
  - Pain [Not Recovered/Not Resolved]
  - Tremor [Not Recovered/Not Resolved]
  - Labelled drug-food interaction medication error [Not Recovered/Not Resolved]
  - Drug effect decreased [Not Recovered/Not Resolved]

NARRATIVE: CASE EVENT DATE: 201606
